FAERS Safety Report 7228780 (Version 11)
Quarter: 2017Q1

REPORT INFORMATION
  Report Type: Report from Study
  Country: JP (occurrence: JP)
  Receive Date: 20091223
  Receipt Date: 20170126
  Transmission Date: 20170429
  Serious: Yes (Hospitalization, Other)
  Sender: FDA-Public Use
  Company Number: PHHO2009JP15061

PATIENT
  Age: 55 Year
  Sex: Male
  Weight: 41 kg

DRUGS (22)
  1. SIMULECT [Concomitant]
     Active Substance: BASILIXIMAB
     Indication: RENAL TRANSPLANT
     Dosage: 20 MG, UNK
     Route: 065
  2. NEUER [Concomitant]
     Active Substance: CETRAXATE HYDROCHLORIDE
     Indication: GASTRITIS PROPHYLAXIS
     Dosage: 600 MG, UNK
     Route: 048
     Dates: start: 20080709
  3. TAKEPRON [Concomitant]
     Active Substance: LANSOPRAZOLE
     Indication: GASTRITIS PROPHYLAXIS
     Dosage: 15 MG, UNK
     Route: 048
     Dates: start: 20081226
  4. ACTONEL [Concomitant]
     Active Substance: RISEDRONATE SODIUM
     Indication: OSTEOPOROSIS
     Dosage: 17.5 MG, UNK
     Route: 048
     Dates: start: 20100506
  5. CERTICAN [Suspect]
     Active Substance: EVEROLIMUS
     Dosage: 1 MG, UNK
     Route: 048
     Dates: start: 20090701, end: 20091203
  6. CERTICAN [Suspect]
     Active Substance: EVEROLIMUS
     Dosage: 1 MG, UNK
     Route: 048
     Dates: start: 20091210, end: 20100420
  7. BLOPRESS [Concomitant]
     Active Substance: CANDESARTAN CILEXETIL
     Indication: RENAL HYPERTENSION
     Dosage: 8 MG, UNK
     Route: 048
     Dates: start: 20080813
  8. OLMETEC [Concomitant]
     Active Substance: OLMESARTAN MEDOXOMIL
     Indication: RENAL HYPERTENSION
     Dosage: 20 MG, UNK
     Route: 048
     Dates: start: 20100819
  9. LASIX [Concomitant]
     Active Substance: FUROSEMIDE
     Indication: RENAL HYPERTENSION
     Dosage: 20 MG, UNK
     Route: 048
     Dates: start: 20110512
  10. ISODINE [Concomitant]
     Active Substance: POVIDONE-IODINE
     Indication: INFECTION PROPHYLAXIS
     Dosage: UNK
     Route: 065
     Dates: start: 20080630
  11. MEDROL [Suspect]
     Active Substance: METHYLPREDNISOLONE
     Indication: RENAL TRANSPLANT
     Dosage: 4 MG, UNK
     Route: 048
     Dates: start: 20081024
  12. CERTICAN [Suspect]
     Active Substance: EVEROLIMUS
     Dosage: 1.5 MG, UNK
     Route: 048
     Dates: start: 20100426
  13. SPIRIVA [Concomitant]
     Active Substance: TIOTROPIUM BROMIDE MONOHYDRATE
     Indication: EMPHYSEMA
     Dosage: UNK
     Route: 065
     Dates: start: 20080430
  14. NEORAL [Suspect]
     Active Substance: CYCLOSPORINE
     Indication: RENAL TRANSPLANT
     Dosage: 40 MG, UNK
     Route: 048
     Dates: start: 20090924
  15. NEORAL [Suspect]
     Active Substance: CYCLOSPORINE
     Dosage: 60 MG, UNK
     Route: 048
     Dates: start: 20110303
  16. NORVASC [Concomitant]
     Active Substance: AMLODIPINE BESYLATE
     Indication: RENAL HYPERTENSION
     Dosage: 13.5 MG, UNK
     Route: 048
     Dates: start: 20090108
  17. CERTICAN [Suspect]
     Active Substance: EVEROLIMUS
     Indication: RENAL TRANSPLANT
     Dosage: 1 MG, UNK
     Route: 048
     Dates: start: 20080708
  18. MAINTATE [Concomitant]
     Active Substance: BISOPROLOL FUMARATE
     Indication: RENAL HYPERTENSION
     Dosage: 5 MG, UNK
     Route: 048
     Dates: start: 20080918
  19. ADALAT CC [Concomitant]
     Active Substance: NIFEDIPINE
     Indication: RENAL HYPERTENSION
     Dosage: 20 MG, UNK
     Route: 048
     Dates: start: 20100916
  20. CARDENALIN [Concomitant]
     Active Substance: DOXAZOSIN MESYLATE
     Indication: RENAL HYPERTENSION
     Dosage: 2 MG, UNK
     Route: 048
     Dates: start: 20090123
  21. MEVALOTIN [Concomitant]
     Active Substance: PRAVASTATIN SODIUM
     Indication: HYPERCHOLESTEROLAEMIA
     Dosage: 5 MG, UNK
     Route: 048
     Dates: start: 20081211
  22. URINORM [Concomitant]
     Active Substance: BENZBROMARONE
     Indication: HYPERURICAEMIA
     Dosage: 50 MG, UNK
     Route: 048
     Dates: start: 20080918

REACTIONS (5)
  - Nephropathy [Not Recovered/Not Resolved]
  - Pneumothorax spontaneous [Recovered/Resolved]
  - Pneumonia [Recovered/Resolved]
  - Pneumonia bacterial [Recovered/Resolved]
  - Pneumothorax spontaneous [Recovered/Resolved]

NARRATIVE: CASE EVENT DATE: 20091126
